FAERS Safety Report 8213425-3 (Version None)
Quarter: 2012Q1

REPORT INFORMATION
  Report Type: 
  Country: None (occurrence: None)
  Receive Date: 20120315
  Receipt Date: 20120309
  Transmission Date: 20120608
  Serious: Yes (Other)
  Sender: FDA-Public Use
  Company Number: US-ROCHE-746574

PATIENT
  Sex: Male
  Weight: 103.9 kg

DRUGS (11)
  1. ZETIA [Concomitant]
  2. LEVOTHYROXINE SODIUM [Concomitant]
     Dates: start: 20110626
  3. VEMURAFENIB [Suspect]
     Indication: METASTATIC MALIGNANT MELANOMA
     Dosage: LAST DOSE: 31 AUG 2011, DOSAGE FORM: 1920 MG
     Route: 048
  4. NEURONTIN [Concomitant]
  5. SIMPLY SLEEP [Concomitant]
     Dosage: FREQUENCY: AS NECESSARY (PRN)
  6. SYNTHROID [Concomitant]
  7. MULTI-VITAMIN [Concomitant]
  8. VITAMIN D [Concomitant]
  9. AMLODIPINE BESYLATE [Concomitant]
  10. IBUPROFEN [Concomitant]
     Dosage: FREQUENCY: AS NECESSARY (PRN)
  11. NAPROXEN (ALEVE) [Concomitant]
     Dates: start: 20110222

REACTIONS (2)
  - PROSTATE CANCER [None]
  - SQUAMOUS CELL CARCINOMA OF SKIN [None]
